FAERS Safety Report 12214922 (Version 1)
Quarter: 2016Q1

REPORT INFORMATION
  Report Type: Spontaneous
  Country: US (occurrence: US)
  Receive Date: 20160328
  Receipt Date: 20160328
  Transmission Date: 20160526
  Serious: No
  Sender: FDA-Public Use
  Company Number: US-JAZZ-2015-US-004975

PATIENT
  Age: 58 Year
  Sex: Male
  Weight: 81.63 kg

DRUGS (8)
  1. NORVASC [Concomitant]
     Active Substance: AMLODIPINE BESYLATE
     Indication: HYPERTENSION
  2. LOSARTAN. [Concomitant]
     Active Substance: LOSARTAN
     Indication: HYPERTENSION
  3. DEPAKOTE [Concomitant]
     Active Substance: DIVALPROEX SODIUM
     Indication: MOOD SWINGS
  4. RAMIPRIL. [Concomitant]
     Active Substance: RAMIPRIL
     Indication: HYPERTENSION
  5. OXYBUTYNIN CHLORIDE. [Concomitant]
     Active Substance: OXYBUTYNIN CHLORIDE
     Indication: ENURESIS
  6. CLOZAPINE USP, ODT [Suspect]
     Active Substance: CLOZAPINE
     Indication: PARANOIA
     Dosage: UNK MG, QD
     Route: 048
     Dates: start: 20150401, end: 20150402
  7. CLOZAPINE USP, ODT [Suspect]
     Active Substance: CLOZAPINE
     Indication: SCHIZOPHRENIA
  8. FLOMAX [Concomitant]
     Active Substance: TAMSULOSIN HYDROCHLORIDE
     Indication: ENURESIS

REACTIONS (1)
  - Swelling face [Unknown]

NARRATIVE: CASE EVENT DATE: 20150402
